FAERS Safety Report 12375765 (Version 3)
Quarter: 2016Q3

REPORT INFORMATION
  Report Type: Spontaneous
  Country: US (occurrence: US)
  Receive Date: 20160517
  Receipt Date: 20160901
  Transmission Date: 20161109
  Serious: No
  Sender: FDA-Public Use
  Company Number: US-RELYPSA-RLY2016000076

PATIENT
  Sex: Female

DRUGS (13)
  1. VELTASSA [Suspect]
     Active Substance: PATIROMER
     Indication: HYPERKALAEMIA
     Dosage: 8.4 GM, QD
     Route: 048
     Dates: start: 20160129
  2. FLUDROCORTISONE ACETATE. [Concomitant]
     Active Substance: FLUDROCORTISONE ACETATE
  3. GLUCOSAMINE HCL [Concomitant]
     Active Substance: GLUCOSAMINE
  4. FUROSEMIDE. [Concomitant]
     Active Substance: FUROSEMIDE
  5. VITAMIN D3 [Concomitant]
     Active Substance: CHOLECALCIFEROL
  6. ALENDRONATE SODIUM. [Concomitant]
     Active Substance: ALENDRONATE SODIUM
  7. ACETAMINOPHEN. [Concomitant]
     Active Substance: ACETAMINOPHEN
  8. MULTIPLE VITAMINS [Concomitant]
     Active Substance: VITAMINS
  9. DOCUSATE CALCIUM. [Concomitant]
     Active Substance: DOCUSATE CALCIUM
  10. STOOL SOFTENER [Concomitant]
     Active Substance: DOCUSATE CALCIUM
  11. MAGNESIUM CITRATE. [Concomitant]
     Active Substance: MAGNESIUM CITRATE
  12. LORATADINE 1A PHARMA [Concomitant]
  13. FLAXSEED [Concomitant]
     Active Substance: FLAX SEED

REACTIONS (1)
  - Constipation [Not Recovered/Not Resolved]
